FAERS Safety Report 24885305 (Version 8)
Quarter: 2025Q2

REPORT INFORMATION
  Report Type: Spontaneous
  Country: HR (occurrence: HR)
  Receive Date: 20250124
  Receipt Date: 20250407
  Transmission Date: 20250716
  Serious: Yes (Life-Threatening, Other)
  Sender: NOVARTIS
  Company Number: HR-002147023-NVSC2025HR009961

PATIENT
  Age: 0 Year
  Sex: Female
  Weight: 3.4 kg

DRUGS (1)
  1. ZOLGENSMA [Suspect]
     Active Substance: ONASEMNOGENE ABEPARVOVEC-XIOI
     Indication: Spinal muscular atrophy
     Route: 042
     Dates: start: 20250114, end: 20250114

REACTIONS (15)
  - Blood creatine phosphokinase increased [Recovered/Resolved]
  - Transaminases increased [Recovered/Resolved]
  - Troponin I increased [Recovered/Resolved]
  - Blood bilirubin increased [Recovered/Resolved]
  - Amylase decreased [Recovered/Resolved]
  - Blood lactate dehydrogenase increased [Recovered/Resolved]
  - Mean cell volume increased [Recovered/Resolved]
  - Mean cell haemoglobin increased [Recovered/Resolved]
  - Eosinophilia [Recovered/Resolved]
  - Monocyte count increased [Recovered/Resolved]
  - White blood cell count decreased [Recovered/Resolved]
  - Neutrophil count decreased [Recovered/Resolved]
  - Lymphocyte count decreased [Recovered/Resolved]
  - Fine motor skill dysfunction [Recovered/Resolved]
  - Haemoglobin decreased [Recovered/Resolved]

NARRATIVE: CASE EVENT DATE: 20250101
